FAERS Safety Report 16255409 (Version 1)
Quarter: 2019Q2

REPORT INFORMATION
  Report Type: Spontaneous
  Country: CA (occurrence: CA)
  Receive Date: 20190326
  Receipt Date: 20190326
  Transmission Date: 20190711
  Serious: No
  Sender: FDA-Public Use
  Company Number: None

PATIENT
  Age: 74 Year
  Sex: Female
  Weight: 65.77 kg

DRUGS (10)
  1. VIT B [Concomitant]
     Active Substance: VITAMIN B
  2. SYMBICORT [Concomitant]
     Active Substance: BUDESONIDE\FORMOTEROL FUMARATE DIHYDRATE
  3. VIT D [Concomitant]
     Active Substance: VITAMIN D NOS
  4. CANDESARTAN. [Concomitant]
     Active Substance: CANDESARTAN
  5. GLUCOSAMINE [Concomitant]
     Active Substance: GLUCOSAMINE
  6. 1 DAY VIT [Concomitant]
  7. LEVAQUIN [Suspect]
     Active Substance: LEVOFLOXACIN
     Indication: PNEUMONIA
     Dosage: ?          QUANTITY:750MG, 3X250MG;?
     Route: 048
     Dates: start: 20190301, end: 20190302
  8. PROPRANOLOL [Concomitant]
     Active Substance: PROPRANOLOL HYDROCHLORIDE
  9. MAGNESIUM [Concomitant]
     Active Substance: MAGNESIUM
  10. CLONAZEPAM. [Concomitant]
     Active Substance: CLONAZEPAM

REACTIONS (6)
  - Hallucination [None]
  - Paraesthesia [None]
  - Paranoia [None]
  - Tremor [None]
  - Gait inability [None]
  - Pain in extremity [None]

NARRATIVE: CASE EVENT DATE: 20190301
